FAERS Safety Report 10213614 (Version 1)
Quarter: 2014Q2

REPORT INFORMATION
  Report Type: Spontaneous
  Country: US (occurrence: US)
  Receive Date: 20140603
  Receipt Date: 20140603
  Transmission Date: 20141212
  Serious: No
  Sender: FDA-Public Use
  Company Number: US-UPSHER-SMITH LABORATORIES, INC.-13003332

PATIENT
  Age: 63 Year
  Sex: Male

DRUGS (13)
  1. PACERONE (USL) [Suspect]
     Indication: PRODUCT USED FOR UNKNOWN INDICATION
     Dosage: 200 MG, QD
     Route: 048
     Dates: start: 201307, end: 201308
  2. MEGESTROL [Concomitant]
     Dosage: UNK
  3. NEBIVOLOL [Concomitant]
     Dosage: UNK
  4. LORATADINE [Concomitant]
     Dosage: UNK
  5. DOCUSATE [Concomitant]
     Dosage: UNK
  6. PROTONIX                           /01263201/ [Concomitant]
     Dosage: UNK
  7. SPIRIVA [Concomitant]
     Indication: CHRONIC OBSTRUCTIVE PULMONARY DISEASE
     Dosage: UNK
  8. ASMANEX [Concomitant]
     Indication: CHRONIC OBSTRUCTIVE PULMONARY DISEASE
     Dosage: UNK
  9. MORPHINE [Concomitant]
     Indication: SPINAL FRACTURE
     Dosage: UNK
  10. ALPRAZOLAM [Concomitant]
     Indication: ANXIETY
     Dosage: UNK
  11. BABY ASPIRIN [Concomitant]
     Dosage: UNK
  12. SPIRONOLACTONE [Concomitant]
     Dosage: UNK
  13. FUROSEMIDE [Concomitant]
     Dosage: UNK

REACTIONS (2)
  - Dizziness [Recovering/Resolving]
  - Fall [Recovering/Resolving]
